FAERS Safety Report 8201985-8 (Version None)
Quarter: 2012Q1

REPORT INFORMATION
  Report Type: 
  Country: None (occurrence: None)
  Receive Date: 20120308
  Receipt Date: 20120301
  Transmission Date: 20120608
  Serious: Yes (Other)
  Sender: FDA-Public Use
  Company Number: ADR-2012-00429

PATIENT
  Age: 11 Year
  Sex: Male

DRUGS (2)
  1. LIORESAL [Suspect]
     Indication: MUSCLE SPASTICITY
     Dosage: 407.4 MCG/DAY
  2. LIORESAL [Suspect]
     Indication: CEREBRAL PALSY
     Dosage: 407.4 MCG/DAY

REACTIONS (10)
  - BACK PAIN [None]
  - VISUAL IMPAIRMENT [None]
  - BLOOD PRESSURE DECREASED [None]
  - BURNING SENSATION [None]
  - MYOCLONUS [None]
  - DIZZINESS [None]
  - PARAESTHESIA [None]
  - DECREASED APPETITE [None]
  - DEVICE MALFUNCTION [None]
  - MUSCLE TWITCHING [None]
